FAERS Safety Report 7686632-6 (Version None)
Quarter: 2011Q3

REPORT INFORMATION
  Report Type: 
  Country: None (occurrence: None)
  Receive Date: 20110816
  Receipt Date: 20110816
  Transmission Date: 20111222
  Serious: Yes (Other)
  Sender: FDA-Public Use
  Company Number: None

PATIENT
  Age: 54 Year
  Sex: Male
  Weight: 90.718 kg

DRUGS (1)
  1. ZYCLARA [Suspect]

REACTIONS (3)
  - VITREOUS FLOATERS [None]
  - VISUAL ACUITY REDUCED [None]
  - BLINDNESS UNILATERAL [None]
